FAERS Safety Report 9531527 (Version 2)
Quarter: 2013Q4

REPORT INFORMATION
  Report Type: Spontaneous
  Country: US (occurrence: US)
  Receive Date: 20130918
  Receipt Date: 20131009
  Transmission Date: 20140711
  Serious: Yes (Hospitalization)
  Sender: FDA-Public Use
  Company Number: US-PFIZER INC-2013265534

PATIENT
  Age: 91 Year
  Sex: Male
  Weight: 84.35 kg

DRUGS (16)
  1. CELEBREX [Suspect]
     Indication: ARTHRITIS
     Dosage: 200 MG, 1X/DAY
     Route: 048
  2. LIPITOR [Suspect]
     Dosage: 40 MG, 1X/DAY
     Route: 048
  3. GABAPENTIN [Concomitant]
     Indication: PAIN
     Dosage: 40 MG, 4X/DAY
  4. PLAVIX [Concomitant]
     Dosage: 75 MG, 1X/DAY
  5. ASPIRIN [Concomitant]
     Dosage: 81 MG, 1X/DAY
  6. DOXYCYCLINE [Concomitant]
     Dosage: 10 MG, UNK
  7. ZMAX [Concomitant]
     Dosage: 25 MG, 2X/DAY
  8. SPIRONOLACTONE [Concomitant]
     Dosage: 25 MG, 2X/DAY
  9. METOPROLOL [Concomitant]
     Dosage: 25 MG, UNK
  10. HYDROXYZINE [Concomitant]
     Dosage: UNK
  11. LORATADINE [Concomitant]
     Dosage: UNK
  12. SODIUM CHLORIDE [Concomitant]
     Dosage: UNK
  13. NITROSTAT [Concomitant]
     Dosage: UNK, AS NEEDED
  14. SYMBICORT [Concomitant]
     Dosage: UNK
  15. COMBIVENT [Concomitant]
     Dosage: UNK
  16. BUMEX [Concomitant]
     Dosage: 4 MG, 2X/DAY
     Route: 048

REACTIONS (4)
  - Aortic valve replacement [Unknown]
  - Aneurysm [Unknown]
  - Swelling [Unknown]
  - Limb discomfort [Unknown]
